FAERS Safety Report 10171237 (Version 2)
Quarter: 2014Q2

REPORT INFORMATION
  Report Type: Spontaneous
  Country: US (occurrence: US)
  Receive Date: 20140514
  Receipt Date: 20140602
  Transmission Date: 20141212
  Serious: No
  Sender: FDA-Public Use
  Company Number: US-PFIZER INC-2014130580

PATIENT
  Age: 67 Year
  Sex: Female

DRUGS (2)
  1. PREMARIN [Suspect]
     Dosage: UNK
     Dates: start: 1992
  2. PREMARIN [Suspect]
     Dosage: 0.625 MG, UNK

REACTIONS (8)
  - Skin discolouration [Unknown]
  - Pain [Unknown]
  - Headache [Unknown]
  - Hot flush [Unknown]
  - Erythema [Unknown]
  - Palpitations [Unknown]
  - General physical condition abnormal [Unknown]
  - Visual impairment [Unknown]
